FAERS Safety Report 4560667-4 (Version None)
Quarter: 2005Q1

REPORT INFORMATION
  Report Type: 
  Country: None (occurrence: None)
  Receive Date: 20050124
  Receipt Date: 20050124
  Transmission Date: 20050727
  Serious: Yes (Other)
  Sender: FDA-Public Use
  Company Number: None

PATIENT
  Age: 68 Year
  Sex: Female
  Weight: 74.8435 kg

DRUGS (1)
  1. CATAPRES-TTS-1 [Suspect]
     Dosage: WEEKLY  EPIDURAL ; APPLY ONE PATCH WEEKLY EXTERNALLY
     Route: 008
     Dates: start: 20020101, end: 20040101

REACTIONS (2)
  - MEDICATION ERROR [None]
  - UTERINE CANCER [None]
